FAERS Safety Report 5341124-4 (Version None)
Quarter: 2007Q2

REPORT INFORMATION
  Report Type: 
  Country: None (occurrence: None)
  Receive Date: 20070531
  Receipt Date: 20070521
  Transmission Date: 20071010
  Serious: Yes (Congenital Anomaly)
  Sender: FDA-Public Use
  Company Number: AU-AMGEN-US226812

PATIENT

DRUGS (1)
  1. ENBREL [Suspect]
     Dosage: UNKNOWN
     Route: 064

REACTIONS (2)
  - CONGENITAL HEARING DISORDER [None]
  - DRUG EXPOSURE DURING PREGNANCY [None]
